FAERS Safety Report 16648660 (Version 1)
Quarter: 2019Q3

REPORT INFORMATION
  Report Type: Spontaneous
  Country: US (occurrence: US)
  Receive Date: 20190730
  Receipt Date: 20190730
  Transmission Date: 20191004
  Serious: Yes (Hospitalization)
  Sender: FDA-Public Use
  Company Number: US-TEVA-2019-US-1084090

PATIENT
  Age: 58 Year
  Sex: Male

DRUGS (6)
  1. HYDROMORPHONE [Suspect]
     Active Substance: HYDROMORPHONE
     Indication: COMPLEX REGIONAL PAIN SYNDROME
     Route: 042
  2. FENTANYL. [Suspect]
     Active Substance: FENTANYL
     Indication: COMPLEX REGIONAL PAIN SYNDROME
     Route: 042
  3. NORMAL SALINE [Concomitant]
     Active Substance: SODIUM CHLORIDE
     Indication: PRODUCT USED FOR UNKNOWN INDICATION
     Route: 040
  4. ADENOSINE. [Suspect]
     Active Substance: ADENOSINE
     Dosage: VIA AN IV CATHETER
     Route: 040
  5. ADENOSINE. [Suspect]
     Active Substance: ADENOSINE
     Indication: SUPRAVENTRICULAR TACHYCARDIA
     Route: 040
  6. MORPHINE SULFATE. [Suspect]
     Active Substance: MORPHINE SULFATE
     Indication: COMPLEX REGIONAL PAIN SYNDROME
     Route: 042

REACTIONS (2)
  - Drug ineffective [Unknown]
  - Complex regional pain syndrome [Recovering/Resolving]
